FAERS Safety Report 14895222 (Version 1)
Quarter: 2018Q2

REPORT INFORMATION
  Report Type: Spontaneous
  Country: US (occurrence: US)
  Receive Date: 20180515
  Receipt Date: 20180515
  Transmission Date: 20180711
  Serious: No
  Sender: FDA-Public Use
  Company Number: US-PFIZER INC-2018193934

PATIENT
  Age: 48 Year
  Sex: Male

DRUGS (1)
  1. NAVANE [Suspect]
     Active Substance: THIOTHIXENE
     Dosage: UNK

REACTIONS (1)
  - Drug effect incomplete [Unknown]
